FAERS Safety Report 8376448-X (Version None)
Quarter: 2012Q2

REPORT INFORMATION
  Report Type: 
  Country: None (occurrence: None)
  Receive Date: 20120522
  Receipt Date: 20120514
  Transmission Date: 20120825
  Serious: Yes (Hospitalization, Other)
  Sender: FDA-Public Use
  Company Number: DE-UCBSA-048901

PATIENT
  Age: 37 Year
  Sex: Female
  Weight: 76.6 kg

DRUGS (5)
  1. VALPROATE SODIUM [Concomitant]
     Dates: start: 20110301, end: 20110801
  2. KEPPRA [Suspect]
     Indication: EPILEPSY
     Route: 048
     Dates: start: 20030701, end: 20031101
  3. KEPPRA [Suspect]
     Route: 048
     Dates: start: 20110801, end: 20111001
  4. OXCARBAZEPINE [Concomitant]
     Indication: EPILEPSY
     Dosage: 2400 MG
     Route: 048
     Dates: start: 20010301, end: 20031001
  5. LACOSAMIDE [Concomitant]
     Indication: EPILEPSY
     Dosage: 400 MG
     Route: 048
     Dates: start: 20110301, end: 20110901

REACTIONS (1)
  - LIVER DISORDER [None]
